FAERS Safety Report 22346415 (Version 2)
Quarter: 2023Q2

REPORT INFORMATION
  Report Type: Report from Study
  Country: US (occurrence: US)
  Receive Date: 20230519
  Receipt Date: 20230530
  Transmission Date: 20230722
  Serious: No
  Sender: FDA-Public Use
  Company Number: US-PFIZER INC-US-GBT-021813

PATIENT
  Age: 41 Year
  Sex: Male

DRUGS (14)
  1. VOXELOTOR [Suspect]
     Active Substance: VOXELOTOR
     Indication: Sickle cell disease
     Dosage: 1500 MG, 1X/DAY
     Dates: start: 20201124, end: 20210214
  2. VOXELOTOR [Suspect]
     Active Substance: VOXELOTOR
     Indication: Anaemia
  3. VOXELOTOR [Suspect]
     Active Substance: VOXELOTOR
     Indication: Sickle cell anaemia with crisis
  4. VOXELOTOR [Suspect]
     Active Substance: VOXELOTOR
     Indication: Pain
  5. ALBUTEROL SULFATE [Concomitant]
     Active Substance: ALBUTEROL SULFATE
     Dosage: 2 PUFF, Q6H
     Route: 055
     Dates: start: 20220118
  6. (VITAMIN C) [Concomitant]
     Dosage: 500 MG, 1X/DAY
     Route: 048
     Dates: start: 20180420
  7. COLCRYS [Concomitant]
     Active Substance: COLCHICINE
     Dosage: 0.6 MG, 1X/DAY
     Route: 048
     Dates: start: 20190827
  8. EPOETIN ALFA-EPBX [Concomitant]
     Active Substance: EPOETIN ALFA-EPBX
     Indication: Sickle cell disease
     Dosage: 40000 IU, ONCE A WEEK
     Route: 062
     Dates: start: 20200928
  9. NALOXONE (NARCAN) [Concomitant]
     Indication: Overdose
     Dosage: 4 MG/ACTUATION NASAL SPRAY 1 SPRAY PRN
     Route: 045
     Dates: start: 20190320
  10. CYANOCOBALAMIN [Concomitant]
     Active Substance: CYANOCOBALAMIN
     Indication: Vitamin C deficiency
     Dosage: 1000 MCG, 1X/DAY
     Route: 048
     Dates: start: 20180420
  11. SODIUM ZIRCONIUM CYCLOSILICATE (LOKELMA) [Concomitant]
     Dosage: 5 MG, 1X/DAY
     Route: 048
     Dates: start: 20210303
  12. LYRICA [Concomitant]
     Active Substance: PREGABALIN
     Dosage: 300 MG, 1X/DAY
     Route: 048
     Dates: start: 20211110
  13. LASIX [Concomitant]
     Active Substance: FUROSEMIDE
     Indication: Sickle cell disease
     Dosage: 20 MG, 1X/DAY
     Route: 048
     Dates: start: 20210303
  14. FOLIC ACID [Concomitant]
     Active Substance: FOLIC ACID
     Indication: Sickle cell disease
     Dosage: 4 MG, 1X/DAY
     Route: 048
     Dates: start: 20180420

REACTIONS (1)
  - Headache [Recovered/Resolved]

NARRATIVE: CASE EVENT DATE: 20220215
